FAERS Safety Report 6435446-3 (Version None)
Quarter: 2009Q4

REPORT INFORMATION
  Report Type: 
  Country: None (occurrence: None)
  Receive Date: 20091106
  Receipt Date: 20091012
  Transmission Date: 20100525
  Serious: Yes (Disabling)
  Sender: FDA-Public Use
  Company Number: 230071M08FRA

PATIENT
  Age: 22 Year
  Sex: Female
  Weight: 53 kg

DRUGS (2)
  1. REBIF [Suspect]
     Indication: MULTIPLE SCLEROSIS
     Dosage: 44 MCG, 3 IN 1 WEEKS, SUBCUTANEOUS
     Route: 058
     Dates: start: 20081027
  2. ANDROCUR (CYPROTERONE ACETATE) [Concomitant]

REACTIONS (6)
  - GAIT DISTURBANCE [None]
  - INJECTION SITE INDURATION [None]
  - INJECTION SITE PAIN [None]
  - INJECTION SITE SWELLING [None]
  - MUSCLE CONTRACTIONS INVOLUNTARY [None]
  - WRONG TECHNIQUE IN DRUG USAGE PROCESS [None]
